FAERS Safety Report 22081556 (Version 2)
Quarter: 2023Q1

REPORT INFORMATION
  Report Type: Spontaneous
  Country: ES (occurrence: ES)
  Receive Date: 20230310
  Receipt Date: 20230320
  Transmission Date: 20230418
  Serious: Yes (Other)
  Sender: FDA-Public Use
  Company Number: ES-AMGEN-ESPSP2023041893

PATIENT

DRUGS (1)
  1. ADALIMUMAB [Suspect]
     Active Substance: ADALIMUMAB
     Indication: Inflammatory bowel disease
     Dosage: 40 MILLIGRAM, Q2WK
     Route: 058

REACTIONS (3)
  - Adverse event [Unknown]
  - Colitis ulcerative [Unknown]
  - Crohn^s disease [Unknown]
